FAERS Safety Report 21871857 (Version 1)
Quarter: 2023Q1

REPORT INFORMATION
  Report Type: Spontaneous
  Country: US (occurrence: US)
  Receive Date: 20230117
  Receipt Date: 20230117
  Transmission Date: 20230417
  Serious: Yes (Death, Hospitalization)
  Sender: FDA-Public Use
  Company Number: US-BAYER-2023A003281

PATIENT
  Age: 65 Year
  Sex: Female

DRUGS (10)
  1. LORATADINE [Suspect]
     Active Substance: LORATADINE
     Route: 048
  2. ASPIRIN [Suspect]
     Active Substance: ASPIRIN
  3. METOPROLOL [Suspect]
     Active Substance: METOPROLOL
  4. CALCIUM [Suspect]
     Active Substance: CALCIUM
  5. NITROGLYCERIN [Suspect]
     Active Substance: NITROGLYCERIN
  6. LEVOTHYROXINE [Suspect]
     Active Substance: LEVOTHYROXINE
  7. MAGNESIUM OXIDE [Suspect]
     Active Substance: MAGNESIUM OXIDE
  8. ZYRTEC [Suspect]
     Active Substance: CETIRIZINE HYDROCHLORIDE
  9. VITAMIN D NOS [Suspect]
     Active Substance: VITAMIN D NOS
  10. BIOTIN [Suspect]
     Active Substance: BIOTIN

REACTIONS (2)
  - Completed suicide [Fatal]
  - Toxicity to various agents [Fatal]
